FAERS Safety Report 16679304 (Version 2)
Quarter: 2019Q3

REPORT INFORMATION
  Report Type: Spontaneous
  Country: US (occurrence: US)
  Receive Date: 20190807
  Receipt Date: 20190822
  Transmission Date: 20191004
  Serious: Yes (Death)
  Sender: FDA-Public Use
  Company Number: US-LUNDBECK-DKLU3002149

PATIENT
  Sex: Male

DRUGS (2)
  1. NORTHERA [Suspect]
     Active Substance: DROXIDOPA
     Route: 048
     Dates: start: 20161115, end: 20190708
  2. NORTHERA [Suspect]
     Active Substance: DROXIDOPA
     Indication: ILL-DEFINED DISORDER
     Route: 048
     Dates: start: 20161115, end: 20190708

REACTIONS (2)
  - Dementia Alzheimer^s type [Fatal]
  - End stage renal disease [Fatal]
